FAERS Safety Report 14340424 (Version 2)
Quarter: 2018Q1

REPORT INFORMATION
  Report Type: Spontaneous
  Country: CH (occurrence: CH)
  Receive Date: 20180101
  Receipt Date: 20180109
  Transmission Date: 20180509
  Serious: Yes (Hospitalization)
  Sender: FDA-Public Use
  Company Number: CH-INDICUS PHARMA-000502

PATIENT
  Age: 72 Year
  Sex: Male

DRUGS (5)
  1. METFORMIN [Suspect]
     Active Substance: METFORMIN HYDROCHLORIDE
     Indication: DIABETES MELLITUS
  2. TORASEMIDE [Concomitant]
     Active Substance: TORSEMIDE
  3. ALDACTONE [Concomitant]
     Active Substance: SPIRONOLACTONE
  4. IRBESARTAN. [Concomitant]
     Active Substance: IRBESARTAN
  5. ACETYLSALICYLIC ACID [Concomitant]
     Active Substance: ASPIRIN

REACTIONS (5)
  - Thrombocytopenia [Unknown]
  - Hepatic failure [Unknown]
  - Shock [Unknown]
  - Lactic acidosis [Recovered/Resolved]
  - Acute kidney injury [Unknown]
